FAERS Safety Report 9986651 (Version 1)
Quarter: 2014Q1

REPORT INFORMATION
  Report Type: Report from Study
  Country: US (occurrence: US)
  Receive Date: 20140307
  Receipt Date: 20140307
  Transmission Date: 20141002
  Serious: No
  Sender: FDA-Public Use
  Company Number: US-ABBVIE-13P-163-1081305-00

PATIENT
  Age: 60 Year
  Sex: Female

DRUGS (5)
  1. HUMIRA [Suspect]
     Indication: COLITIS ULCERATIVE
     Route: 058
     Dates: start: 20130214
  2. LIALDA [Concomitant]
     Indication: COLITIS ULCERATIVE
  3. NORVASC [Concomitant]
     Indication: HYPERTENSION
  4. HCTZ [Concomitant]
     Indication: HYPERTENSION
  5. CLARITIN [Concomitant]
     Indication: HYPERSENSITIVITY

REACTIONS (3)
  - Haematochezia [Not Recovered/Not Resolved]
  - Colitis ulcerative [Not Recovered/Not Resolved]
  - Muscle spasms [Not Recovered/Not Resolved]
